FAERS Safety Report 14268847 (Version 1)
Quarter: 2017Q4

REPORT INFORMATION
  Report Type: Spontaneous
  Country: US (occurrence: US)
  Receive Date: 20171211
  Receipt Date: 20171211
  Transmission Date: 20180321
  Serious: Yes (Death, Hospitalization, Other)
  Sender: FDA-Public Use
  Company Number: US-GLAXOSMITHKLINE-US2017GSK189143

PATIENT
  Age: 22 Month
  Sex: Male

DRUGS (1)
  1. PROPAFENONE. [Suspect]
     Active Substance: PROPAFENONE
     Indication: PRODUCT USED FOR UNKNOWN INDICATION

REACTIONS (6)
  - Death [Fatal]
  - Cardiac arrest [Unknown]
  - Status epilepticus [Unknown]
  - Toxicity to various agents [Fatal]
  - Accidental exposure to product [Fatal]
  - Seizure [Unknown]
